FAERS Safety Report 7831727-7 (Version None)
Quarter: 2011Q4

REPORT INFORMATION
  Report Type: 
  Country: None (occurrence: None)
  Receive Date: 20111019
  Receipt Date: 20111006
  Transmission Date: 20120403
  Serious: Yes (Hospitalization, Other)
  Sender: FDA-Public Use
  Company Number: AUR-APL-2011-05370

PATIENT
  Age: 27 Year
  Sex: Female

DRUGS (7)
  1. VALPROATE SODIUM [Concomitant]
  2. TRIHEXYPHENIDYL HCL [Concomitant]
  3. LANSOPRAZOLE [Concomitant]
  4. METFORMIN HCL [Suspect]
     Indication: PRODUCT USED FOR UNKNOWN INDICATION
     Dates: start: 20110409
  5. FLUOXETINE HYDROCHLORIDE [Concomitant]
  6. CLOZARIL [Suspect]
     Indication: SCHIZOPHRENIA
     Dosage: ORAL
     Dates: start: 20100106, end: 20110601
  7. DIAZEPAM [Suspect]
     Indication: PRODUCT USED FOR UNKNOWN INDICATION
     Dates: start: 20110409

REACTIONS (5)
  - MULTIPLE DRUG OVERDOSE [None]
  - WEIGHT INCREASED [None]
  - SUICIDE ATTEMPT [None]
  - AFFECTIVE DISORDER [None]
  - NEUTROPENIA [None]
